FAERS Safety Report 22149616 (Version 2)
Quarter: 2023Q4

REPORT INFORMATION
  Report Type: Spontaneous
  Country: IT (occurrence: IT)
  Receive Date: 20230329
  Receipt Date: 20231020
  Transmission Date: 20240109
  Serious: Yes (Other)
  Sender: FDA-Public Use
  Company Number: None

PATIENT
  Age: 53 Year
  Sex: Male
  Weight: 82 kg

DRUGS (4)
  1. TESAVEL [SITAGLIPTIN PHOSPHATE] [Concomitant]
     Indication: Type 2 diabetes mellitus
     Dosage: 100MG
     Route: 048
     Dates: start: 20090610, end: 20230210
  2. RYBELSUS [Suspect]
     Active Substance: SEMAGLUTIDE
     Indication: Type 2 diabetes mellitus
     Dosage: 3 MG, QD( FOR 30 DAYS)
     Route: 048
     Dates: start: 20230213, end: 20230313
  3. METFORMIN HYDROCHLORIDE [Concomitant]
     Active Substance: METFORMIN HYDROCHLORIDE
     Indication: Type 2 diabetes mellitus
     Dosage: 1000MG
     Route: 048
     Dates: start: 20090610
  4. RYBELSUS [Suspect]
     Active Substance: SEMAGLUTIDE
     Indication: Type 2 diabetes mellitus
     Dosage: 7 MG, QD( FOR 7 DAYS)
     Route: 048
     Dates: start: 20230205, end: 20230212

REACTIONS (2)
  - Vitreous detachment [Recovered/Resolved]
  - Retinal tear [Recovered/Resolved]

NARRATIVE: CASE EVENT DATE: 20230313
